FAERS Safety Report 9697399 (Version 2)
Quarter: 2013Q4

REPORT INFORMATION
  Report Type: Spontaneous
  Country: BR (occurrence: BR)
  Receive Date: 20131120
  Receipt Date: 20131210
  Transmission Date: 20140711
  Serious: Yes (Other)
  Sender: FDA-Public Use
  Company Number: BR-JNJFOC-20131107890

PATIENT
  Sex: Female

DRUGS (3)
  1. TYLEX [Suspect]
     Route: 065
  2. TYLEX [Suspect]
     Indication: PAIN
     Route: 065
     Dates: start: 201310
  3. EUTHYROX [Concomitant]
     Indication: PRODUCT USED FOR UNKNOWN INDICATION
     Route: 065

REACTIONS (5)
  - Thyroidectomy [Unknown]
  - Rheumatic disorder [Unknown]
  - Osteoarthritis [Unknown]
  - Nausea [Not Recovered/Not Resolved]
  - Product packaging quantity issue [Unknown]
